FAERS Safety Report 5751890-1 (Version None)
Quarter: 2008Q2

REPORT INFORMATION
  Report Type: 
  Country: None (occurrence: None)
  Receive Date: 20080527
  Receipt Date: 20080513
  Transmission Date: 20081010
  Serious: Yes (Hospitalization)
  Sender: FDA-Public Use
  Company Number: 2008BI011464

PATIENT
  Age: 45 Year
  Sex: Male
  Weight: 108.8633 kg

DRUGS (1)
  1. AVONEX [Suspect]
     Indication: MULTIPLE SCLEROSIS
     Dosage: 30 UG;QW; IM
     Route: 030
     Dates: start: 20080422

REACTIONS (6)
  - ARTHRITIS INFECTIVE [None]
  - CELLULITIS [None]
  - FALL [None]
  - INFLUENZA LIKE ILLNESS [None]
  - JOINT INJURY [None]
  - LOSS OF CONTROL OF LEGS [None]
